FAERS Safety Report 6085857-3 (Version None)
Quarter: 2009Q1

REPORT INFORMATION
  Report Type: 
  Country: None (occurrence: None)
  Receive Date: 20090220
  Receipt Date: 20090212
  Transmission Date: 20090719
  Serious: Yes (Hospitalization)
  Sender: FDA-Public Use
  Company Number: B0558918A

PATIENT
  Age: 44 Year
  Sex: Female

DRUGS (3)
  1. EPIVIR [Suspect]
     Dosage: 300MG PER DAY
     Route: 048
     Dates: start: 20051001
  2. INVIRASE [Suspect]
     Dosage: 1200MG PER DAY
     Route: 048
     Dates: start: 20051001
  3. KALETRA [Suspect]
     Dosage: 3UNIT TWICE PER DAY
     Route: 048
     Dates: start: 20051001

REACTIONS (1)
  - PORTAL VEIN THROMBOSIS [None]
